FAERS Safety Report 4768482-3 (Version None)
Quarter: 2005Q3

REPORT INFORMATION
  Report Type: 
  Country: None (occurrence: None)
  Receive Date: 20050913
  Receipt Date: 20050831
  Transmission Date: 20060218
  Serious: Yes (Hospitalization, Other)
  Sender: FDA-Public Use
  Company Number: 2005122585

PATIENT
  Age: 84 Year
  Sex: Male
  Weight: 79.3795 kg

DRUGS (8)
  1. LIPITOR [Suspect]
     Indication: BLOOD CHOLESTEROL
     Dosage: 10 MG (20 MG, ONE-HALF TABLET DAILY), ORAL
     Route: 048
  2. TOPROL-XL [Concomitant]
  3. ATACAND [Concomitant]
  4. FUROSEMIDE [Concomitant]
  5. VITAMINS (VITAMINS) [Concomitant]
  6. WARFARIN SODIUM [Concomitant]
  7. AMIODARONE HCL [Concomitant]
  8. LANOXIN [Concomitant]

REACTIONS (2)
  - ANGINA PECTORIS [None]
  - MYALGIA [None]
